FAERS Safety Report 8374581-X (Version None)
Quarter: 2012Q2

REPORT INFORMATION
  Report Type: 
  Country: None (occurrence: None)
  Receive Date: 20120521
  Receipt Date: 20120418
  Transmission Date: 20120825
  Serious: No
  Sender: FDA-Public Use
  Company Number: CN-JNJFOC-20110303617

PATIENT
  Sex: Female

DRUGS (3)
  1. TOPAMAX [Suspect]
     Dosage: START DAY 24-FEB-2011
     Route: 048
     Dates: start: 20110201, end: 20110308
  2. TOPAMAX [Suspect]
     Indication: EPILEPSY
     Route: 048
     Dates: start: 20110210, end: 20110224
  3. DEPAKENE [Concomitant]
     Indication: EPILEPSY
     Route: 065
     Dates: start: 20110214

REACTIONS (3)
  - HOSPITALISATION [None]
  - DECREASED APPETITE [None]
  - HYPERTENSION [None]
